FAERS Safety Report 8903359 (Version 2)
Quarter: 2012Q4

REPORT INFORMATION
  Report Type: Report from Study
  Country: DE (occurrence: DE)
  Receive Date: 20121113
  Receipt Date: 20121128
  Transmission Date: 20130627
  Serious: Yes (Hospitalization)
  Sender: FDA-Public Use
  Company Number: DE-VERTEX PHARMACEUTICAL INC.-2012-024395

PATIENT
  Age: 47 Year
  Sex: Female
  Weight: 85 kg

DRUGS (3)
  1. VX-950 (TELAPREVIR) [Suspect]
     Indication: CHRONIC HEPATITIS C
     Dosage: 2250 mg, qd
     Route: 048
     Dates: start: 20111124, end: 20120216
  2. PEGASYS [Suspect]
     Indication: CHRONIC HEPATITIS C
     Dosage: 180 ?g, qw
     Route: 058
     Dates: start: 20111124, end: 20121107
  3. RIBAVIRIN [Suspect]
     Indication: CHRONIC HEPATITIS C
     Dosage: 1200 mg, qd
     Route: 048
     Dates: start: 20111124, end: 20121107

REACTIONS (1)
  - Osteonecrosis [Not Recovered/Not Resolved]
